FAERS Safety Report 17253749 (Version 3)
Quarter: 2020Q1

REPORT INFORMATION
  Report Type: Report from Study
  Country: DE (occurrence: DE)
  Receive Date: 20200109
  Receipt Date: 20200129
  Transmission Date: 20200409
  Serious: Yes (Hospitalization)
  Sender: FDA-Public Use
  Company Number: DE-MYLANLABS-2020M1002872

PATIENT
  Age: 56 Year
  Sex: Female

DRUGS (30)
  1. TRASTUZUMAB. [Suspect]
     Active Substance: TRASTUZUMAB
     Dosage: MAINTENANCE DOSE, LAST DOSE PRIORSAE14/JUN/13
     Route: 042
     Dates: start: 20130402, end: 20130402
  2. TRASTUZUMAB. [Suspect]
     Active Substance: TRASTUZUMAB
     Dosage: DATE OF LAST DOSE PRIOR TO DIARRHOEA: 05/SEP/2013,420 MILLIGRAM
     Route: 042
     Dates: start: 20130905
  3. PERTUZUMAB. [Suspect]
     Active Substance: PERTUZUMAB
     Indication: HER-2 POSITIVE BREAST CANCER
     Dosage: LOADING DOSE AS PER PROTOCOL.
     Route: 042
     Dates: start: 20130402, end: 20130402
  4. CLEXANE [Concomitant]
     Active Substance: ENOXAPARIN SODIUM
     Dosage: UNK
     Route: 058
     Dates: start: 20130423
  5. SAROTEN [Concomitant]
     Active Substance: AMITRIPTYLINE
     Indication: PRODUCT USED FOR UNKNOWN INDICATION
     Dosage: 50 MILLIGRAM
     Route: 065
  6. TRASTUZUMAB. [Suspect]
     Active Substance: TRASTUZUMAB
     Dosage: LAST DOSE PRIOR TO DIARRHOEA: 05/SEP/13
     Route: 042
     Dates: start: 20130905
  7. PERTUZUMAB. [Suspect]
     Active Substance: PERTUZUMAB
     Dosage: MAINTENANCE DOSE, LAST DOSE PRIOR TO REDUCED CONDITION ON 14/JUN/2013
     Route: 042
     Dates: start: 20130430
  8. CLEXANE [Concomitant]
     Active Substance: ENOXAPARIN SODIUM
     Indication: THROMBOSIS
     Dosage: UNK
     Route: 065
     Dates: start: 20130405, end: 20130407
  9. OCTENISEPT                         /06269102/ [Concomitant]
     Indication: PRODUCT USED FOR UNKNOWN INDICATION
     Dosage: UNK
     Route: 065
     Dates: start: 20130507, end: 20130531
  10. IBUPROFEN. [Concomitant]
     Active Substance: IBUPROFEN
     Indication: PRODUCT USED FOR UNKNOWN INDICATION
     Dosage: UNK
     Route: 065
     Dates: start: 20130628
  11. TRASTUZUMAB. [Suspect]
     Active Substance: TRASTUZUMAB
     Dosage: 8 MILLIGRAM/KILOGRAM
     Route: 042
     Dates: start: 20190402
  12. ULCOGANT [Concomitant]
     Active Substance: SUCRALFATE
     Dosage: 1 DOSAGE FORM
     Route: 065
  13. DUROGESIC [Concomitant]
     Active Substance: FENTANYL
     Indication: CANCER PAIN
     Dosage: TOTAL DAILY DOSE REPORTED AS: 125/3MG.
     Route: 065
  14. TRASTUZUMAB. [Suspect]
     Active Substance: TRASTUZUMAB
     Dosage: MAINTENANCE DOSE, LAST DOSE PRIOR TO SAE: 12/JUL/2013
     Route: 042
     Dates: start: 20130413
  15. PACLITAXEL. [Suspect]
     Active Substance: PACLITAXEL
     Indication: BREAST CANCER
     Dosage: DATE OF LAST DOSE PRIOR TO DIARRHOEA: 05/SEP/2013
     Route: 042
     Dates: start: 20130905
  16. LASIX [Concomitant]
     Active Substance: FUROSEMIDE
     Indication: PRODUCT USED FOR UNKNOWN INDICATION
     Dosage: UNK
     Route: 065
     Dates: start: 20130801
  17. OBSTINOL [Concomitant]
     Indication: PRODUCT USED FOR UNKNOWN INDICATION
     Dosage: UNK
     Route: 065
  18. IBUPROFEN. [Concomitant]
     Active Substance: IBUPROFEN
     Dosage: 1200 MILLIGRAM
     Route: 065
  19. LYRICA [Concomitant]
     Active Substance: PREGABALIN
     Indication: METASTASIS
     Dosage: UNK
     Route: 065
     Dates: start: 20130801
  20. TRASTUZUMAB. [Suspect]
     Active Substance: TRASTUZUMAB
     Dosage: LAST DOSE PRIORSAE12/JUL/13, 522 MILLIGRAM
     Route: 042
     Dates: start: 20130430
  21. CLEXANE [Concomitant]
     Active Substance: ENOXAPARIN SODIUM
     Dosage: UNK
     Route: 065
     Dates: start: 20140220, end: 20140313
  22. TRASTUZUMAB. [Suspect]
     Active Substance: TRASTUZUMAB
     Indication: HER-2 POSITIVE BREAST CANCER
     Dosage: MAINT. DOSE, LAST DOSE PRIORSAE14/JUL/13
     Route: 042
  23. TRASTUZUMAB. [Suspect]
     Active Substance: TRASTUZUMAB
     Dosage: LOADING DOSE AS PER PROTOCOL
     Route: 042
     Dates: start: 20130402, end: 20130402
  24. PERTUZUMAB. [Suspect]
     Active Substance: PERTUZUMAB
     Dosage: LAST DOSE PRIOR TO DIARRHOEA: 05/SEP/13
     Route: 042
     Dates: start: 20130905
  25. ULCOGANT [Concomitant]
     Active Substance: SUCRALFATE
     Indication: GASTROINTESTINAL DISORDER PROPHYLAXIS
     Dosage: 3 BAGS
     Route: 065
  26. LAXOBERAL [Concomitant]
     Active Substance: SODIUM PICOSULFATE
     Indication: PRODUCT USED FOR UNKNOWN INDICATION
     Dosage: 10 DROPS
     Route: 065
  27. TRASTUZUMAB. [Suspect]
     Active Substance: TRASTUZUMAB
     Dosage: LOADING DOSE AS PER PROTOCOL
     Route: 042
     Dates: start: 20130402, end: 20130402
  28. PACLITAXEL. [Suspect]
     Active Substance: PACLITAXEL
     Indication: HER-2 POSITIVE BREAST CANCER
     Dosage: LAST DOSE PRIOR TO REDUCED CONDITION ON 21/JUN/2013. LAST DOSE PRIOR TO SAE
     Route: 042
     Dates: start: 20130402, end: 20130719
  29. PERTUZUMAB. [Suspect]
     Active Substance: PERTUZUMAB
     Dosage: LAST DOSE PRIOR TO DIARRHOEA: 05/SEP/13
     Route: 042
     Dates: start: 20131205
  30. CLEXANE [Concomitant]
     Active Substance: ENOXAPARIN SODIUM
     Dosage: UNK
     Route: 065
     Dates: start: 20130712, end: 20130723

REACTIONS (3)
  - General physical health deterioration [Recovered/Resolved with Sequelae]
  - Diarrhoea [Recovered/Resolved]
  - Hypokalaemia [Recovered/Resolved]

NARRATIVE: CASE EVENT DATE: 20130513
